FAERS Safety Report 9989399 (Version 1)
Quarter: 2013Q4

REPORT INFORMATION
  Report Type: Spontaneous
  Country: GB (occurrence: None)
  Receive Date: 20131101
  Receipt Date: 20131101
  Transmission Date: 20140711
  Serious: Yes (Life-Threatening, Hospitalization)
  Sender: FDA-Public Use
  Company Number: AUR-APL-2013-06235

PATIENT
  Age: 39 Year
  Sex: Female
  Weight: 69.85 kg

DRUGS (5)
  1. QUETIAPINE [Suspect]
     Indication: DEPRESSION
     Route: 048
     Dates: start: 201106, end: 201304
  2. ARIPIRAZOLE [Suspect]
     Route: 048
     Dates: start: 200805, end: 201306
  3. LITHIUM CARBONATE [Concomitant]
  4. SERTRALINE [Concomitant]
  5. RISPERIDONE [Concomitant]

REACTIONS (1)
  - Pulmonary embolism [None]
